FAERS Safety Report 12389033 (Version 1)
Quarter: 2016Q2

REPORT INFORMATION
  Report Type: Spontaneous
  Country: US (occurrence: US)
  Receive Date: 20160520
  Receipt Date: 20160520
  Transmission Date: 20160815
  Serious: No
  Sender: FDA-Public Use
  Company Number: US-MDT-ADR-2015-02434

PATIENT
  Age: 50 Year
  Sex: Female

DRUGS (4)
  1. UNKNOWN MEDICATION [Suspect]
     Active Substance: UNSPECIFIED INGREDIENT
     Route: 048
  2. BACLOFEN. [Suspect]
     Active Substance: BACLOFEN
     Dosage: 326.18 MCG/DAY
     Route: 037
  3. DILAUDID [Suspect]
     Active Substance: HYDROMORPHONE HYDROCHLORIDE
     Dosage: 376.36 MCG/DAY
     Route: 037
  4. PRIALT [Suspect]
     Active Substance: ZICONOTIDE ACETATE
     Dosage: 1.2545 MCG/DAY
     Route: 037

REACTIONS (8)
  - Adverse drug reaction [Unknown]
  - Abdominal discomfort [Unknown]
  - Weight decreased [Unknown]
  - Feeling hot [Unknown]
  - Muscle tightness [Unknown]
  - Nausea [Unknown]
  - Pain [Unknown]
  - Pain in extremity [Unknown]

NARRATIVE: CASE EVENT DATE: 201508
